FAERS Safety Report 6863147-6 (Version None)
Quarter: 2010Q3

REPORT INFORMATION
  Report Type: 
  Country: None (occurrence: None)
  Receive Date: 20100721
  Receipt Date: 20100712
  Transmission Date: 20110219
  Serious: Yes (Other)
  Sender: FDA-Public Use
  Company Number: JP-ROCHE-715220

PATIENT
  Sex: Female
  Weight: 43 kg

DRUGS (16)
  1. TOCILIZUMAB [Suspect]
     Indication: RHEUMATOID ARTHRITIS
     Route: 041
     Dates: start: 20090409, end: 20090409
  2. TOCILIZUMAB [Suspect]
     Route: 041
     Dates: start: 20090507, end: 20090507
  3. TOCILIZUMAB [Suspect]
     Route: 041
     Dates: start: 20090604, end: 20090604
  4. TOCILIZUMAB [Suspect]
     Route: 041
     Dates: start: 20090702, end: 20090702
  5. TOCILIZUMAB [Suspect]
     Route: 041
     Dates: start: 20090730, end: 20090730
  6. TOCILIZUMAB [Suspect]
     Route: 041
     Dates: start: 20090827, end: 20090827
  7. TOCILIZUMAB [Suspect]
     Route: 041
     Dates: start: 20090924, end: 20090924
  8. TOCILIZUMAB [Suspect]
     Route: 041
     Dates: start: 20091022
  9. PREDNISOLONE [Suspect]
     Indication: RHEUMATOID ARTHRITIS
     Dosage: FORM: PERORAL AGENT
     Route: 048
  10. RHEUMATREX [Concomitant]
     Route: 048
  11. HYPEN [Concomitant]
     Route: 048
  12. ROCALTROL [Concomitant]
     Route: 048
  13. GASTROZEPIN [Concomitant]
     Dosage: FORM: PERORAL AGENT
     Route: 048
  14. METHYCOBAL [Concomitant]
     Route: 048
  15. OMEPRAZOLE [Concomitant]
     Route: 048
  16. BENET [Concomitant]
     Route: 048

REACTIONS (4)
  - DYSLIPIDAEMIA [None]
  - LYMPHOCYTE COUNT DECREASED [None]
  - NEUTROPHIL COUNT DECREASED [None]
  - WHITE BLOOD CELL COUNT DECREASED [None]
